FAERS Safety Report 10038962 (Version 1)
Quarter: 2014Q1

REPORT INFORMATION
  Report Type: Spontaneous
  Country: US (occurrence: None)
  Receive Date: 20140306
  Receipt Date: 20140306
  Transmission Date: 20141002
  Serious: Yes (Hospitalization, Other)
  Sender: FDA-Public Use
  Company Number: 163-21880-13052771

PATIENT
  Age: 88 Year
  Sex: Female
  Weight: 70.31 kg

DRUGS (8)
  1. REVLIMID (LENALIDOMIDE) (10 MILLIGRAM, CAPSULES) [Suspect]
     Indication: LYMPHOMA
     Route: 048
     Dates: start: 201304
  2. LOSARTAN (LOSARTAN) (UNKNOWN) [Suspect]
  3. HCTZ (HYDROCHLOROTHIAZIDE) (UNKNOWN) [Concomitant]
  4. GLIMERPIRIDE (GLIMEPIRIDE) (UNKNOWN) [Concomitant]
  5. CRESTOR (ROSUVASTATIN) (UNKNOWN) [Concomitant]
  6. ALLOPURINOL (ALLOPURINOL) (UNKNOWN) [Concomitant]
  7. LEVOTHYROXINE (LEVOTHYROXINE) (UNKNOWN) [Concomitant]
  8. WARFARIN SODIUM (WARFARIN SODIUM) (UNKNOWN) [Concomitant]

REACTIONS (2)
  - Thrombosis [None]
  - Dyspnoea [None]
